FAERS Safety Report 14148191 (Version 1)
Quarter: 2017Q4

REPORT INFORMATION
  Report Type: Spontaneous
  Country: US (occurrence: None)
  Receive Date: 20171031
  Receipt Date: 20171031
  Transmission Date: 20180321
  Serious: No
  Sender: FDA-Public Use
  Company Number: None

PATIENT
  Age: 70 Year
  Sex: Female

DRUGS (1)
  1. JAKAFI [Suspect]
     Active Substance: RUXOLITINIB
     Route: 048
     Dates: start: 20170911

REACTIONS (4)
  - Visual impairment [None]
  - Anaemia [None]
  - Fatigue [None]
  - Weight increased [None]

NARRATIVE: CASE EVENT DATE: 20171031
